FAERS Safety Report 25706050 (Version 2)
Quarter: 2025Q3

REPORT INFORMATION
  Report Type: Spontaneous
  Country: US (occurrence: US)
  Receive Date: 20250820
  Receipt Date: 20250820
  Transmission Date: 20251021
  Serious: No
  Sender: PFIZER
  Company Number: US-PFIZER INC-202500166314

PATIENT
  Age: 75 Year
  Sex: Female

DRUGS (1)
  1. NIVESTYM [Suspect]
     Active Substance: FILGRASTIM-AAFI

REACTIONS (4)
  - Diarrhoea [Unknown]
  - Asthenia [Unknown]
  - Confusional state [Unknown]
  - Gait inability [Unknown]
